FAERS Safety Report 7514026-2 (Version None)
Quarter: 2011Q2

REPORT INFORMATION
  Report Type: 
  Country: None (occurrence: None)
  Receive Date: 20110531
  Receipt Date: 20100208
  Transmission Date: 20111010
  Serious: No
  Sender: FDA-Public Use
  Company Number: US-BAYER-201013705NA

PATIENT
  Age: 74 Year
  Sex: Female

DRUGS (6)
  1. ZOLPIDEM [Concomitant]
  2. SYNTHROID [Concomitant]
  3. PHENERGAN HCL [Concomitant]
  4. ZINC [Concomitant]
  5. AVELOX [Suspect]
     Indication: PRODUCT USED FOR UNKNOWN INDICATION
     Dosage: 400 MG, UNK
     Route: 048
  6. LIPITOR [Concomitant]

REACTIONS (1)
  - NO ADVERSE EVENT [None]
